FAERS Safety Report 10264410 (Version 1)
Quarter: 2014Q2

REPORT INFORMATION
  Report Type: Spontaneous
  Country: US (occurrence: None)
  Receive Date: 20140530
  Receipt Date: 20140530
  Transmission Date: 20141212
  Serious: Yes (Hospitalization)
  Sender: FDA-Public Use
  Company Number: 2013038882

PATIENT
  Sex: Female

DRUGS (18)
  1. HIZENTRA (IMMUNOGLOBULIN HUMAN NORMAL) [Suspect]
     Indication: IMMUNODEFICIENCY COMMON VARIABLE
     Dosage: 1X WEEK, 1 GM 5 ML VIAL, 2-6 SITES OVER 1-2 HOURS SUBCUTANEOUS)
     Route: 058
  2. ACETAMINOPHEN (PARACETAMOL) [Concomitant]
  3. DIPHENHYDRAMINE [Concomitant]
  4. EPIPEN (EPINEPHRINE) [Concomitant]
  5. LMX (LIDOCAINE ) [Concomitant]
  6. PANTOPRAZOLE [Concomitant]
  7. LOSARTAN POTASSIUM [Concomitant]
  8. FUROSEMIDE [Concomitant]
  9. TRAVATAN (TRAVOPROST) [Concomitant]
  10. NITROSTAT (GLYCERYL TRINITRATE) [Concomitant]
  11. VICODIN [Concomitant]
  12. LORAZEPAM [Concomitant]
  13. AMIODARONE [Concomitant]
  14. AMINODARONE [Concomitant]
  15. FOLIC ACID [Concomitant]
  16. SERTRALINE [Concomitant]
  17. ADVAIR DISKUS [Concomitant]
  18. KLOR CON (POTASSIUM CHLORIDE) [Concomitant]

REACTIONS (1)
  - Thrombosis [None]
